FAERS Safety Report 21145249 (Version 1)
Quarter: 2022Q3

REPORT INFORMATION
  Report Type: Spontaneous
  Country: CO (occurrence: CO)
  Receive Date: 20220729
  Receipt Date: 20220729
  Transmission Date: 20221027
  Serious: Yes (Hospitalization, Other)
  Sender: FDA-Public Use
  Company Number: CO-AMGEN-COLSP2022126038

PATIENT
  Age: 44 Year
  Sex: Male

DRUGS (1)
  1. BLINATUMOMAB [Suspect]
     Active Substance: BLINATUMOMAB
     Indication: Acute lymphocytic leukaemia
     Dosage: UNK
     Route: 065

REACTIONS (7)
  - Pancytopenia [Unknown]
  - Coronavirus pneumonia [Recovering/Resolving]
  - Pleural effusion [Recovering/Resolving]
  - General physical health deterioration [Recovering/Resolving]
  - Hypogammaglobulinaemia [Not Recovered/Not Resolved]
  - Hypotension [Unknown]
  - Febrile neutropenia [Unknown]

NARRATIVE: CASE EVENT DATE: 20210101
